FAERS Safety Report 21241540 (Version 1)
Quarter: 2022Q3

REPORT INFORMATION
  Report Type: Spontaneous
  Country: FR (occurrence: FR)
  Receive Date: 20220823
  Receipt Date: 20220823
  Transmission Date: 20221027
  Serious: Yes (Death)
  Sender: FDA-Public Use
  Company Number: None

PATIENT
  Age: 60 Year
  Sex: Female
  Weight: 92 kg

DRUGS (4)
  1. DOCETAXEL [Suspect]
     Active Substance: DOCETAXEL
     Indication: Breast cancer stage III
     Dosage: UNIT DOSE: 140 MG, FREQUENCY TIME : 1 TOTAL, DURATION : 1 DAY
     Dates: start: 20220718, end: 20220718
  2. CYCLOPHOSPHAMIDE [Suspect]
     Active Substance: CYCLOPHOSPHAMIDE
     Indication: Breast cancer stage III
     Dosage: UNIT DOSE: 1000 MG, FREQUENCY TIME ; 1 TOTAL, DURATION : 1 DAY
     Dates: start: 20220718, end: 20220718
  3. BETAXOLOL [Concomitant]
     Active Substance: BETAXOLOL
     Indication: Product used for unknown indication
     Dosage: THERAPY START DATE : ASKU, UNIT DOSE: 20 MG, FREQUENCY TIME : 1 DAY
  4. ELIQUIS [Concomitant]
     Active Substance: APIXABAN
     Indication: Product used for unknown indication
     Dosage: STRENGTH: 5 MG, UNIT DOSE: 5 MG, FREQUENCY TIME : 1 DAY, THERAPY START DATE : ASKU

REACTIONS (1)
  - Colitis [Fatal]

NARRATIVE: CASE EVENT DATE: 20220725
